FAERS Safety Report 14002209 (Version 1)
Quarter: 2017Q3

REPORT INFORMATION
  Report Type: Spontaneous
  Country: US (occurrence: US)
  Receive Date: 20170922
  Receipt Date: 20170922
  Transmission Date: 20171128
  Serious: No
  Sender: FDA-Public Use
  Company Number: US-MAYNE PHARMA-2017MYN001071

PATIENT
  Age: 68 Year
  Sex: Female
  Weight: 45.35 kg

DRUGS (2)
  1. THYROID [Concomitant]
     Active Substance: LEVOTHYROXINE\LIOTHYRONINE
  2. CARBIDOPA/LEVODOPA [Suspect]
     Active Substance: CARBIDOPA\LEVODOPA
     Indication: PARKINSON^S DISEASE
     Dosage: .5 DF, ONCE
     Route: 048
     Dates: start: 20170608, end: 20170608

REACTIONS (5)
  - Blood pressure increased [Recovered/Resolved]
  - Mobility decreased [Recovered/Resolved]
  - Headache [Recovering/Resolving]
  - Central nervous system stimulation [Recovered/Resolved]
  - Malaise [Recovered/Resolved]

NARRATIVE: CASE EVENT DATE: 20170608
